FAERS Safety Report 9520104 (Version 2)
Quarter: 2014Q2

REPORT INFORMATION
  Report Type: Report from Study
  Country: NL (occurrence: NL)
  Receive Date: 20130912
  Receipt Date: 20140605
  Transmission Date: 20141212
  Serious: Yes (Hospitalization)
  Sender: FDA-Public Use
  Company Number: PHHY2013NL100601

PATIENT
  Age: 38 Year
  Sex: Female
  Weight: 65 kg

DRUGS (2)
  1. GILENYA [Suspect]
     Indication: MULTIPLE SCLEROSIS
     Dosage: 0.5 MG, QD
     Route: 048
     Dates: start: 20130820, end: 20130904
  2. FAMPYRA [Concomitant]
     Indication: GAIT DISTURBANCE
     Dosage: 10 MG, BID
     Dates: start: 20120615

REACTIONS (4)
  - Chest discomfort [Recovered/Resolved]
  - Fatigue [Recovered/Resolved]
  - Bradycardia [Recovered/Resolved]
  - Dizziness [Recovered/Resolved]
